FAERS Safety Report 8546038-4 (Version None)
Quarter: 2012Q3

REPORT INFORMATION
  Report Type: 
  Country: None (occurrence: None)
  Receive Date: 20120727
  Receipt Date: 20111202
  Transmission Date: 20120928
  Serious: No
  Sender: FDA-Public Use
  Company Number: US-ASTRAZENECA-2011SE73373

PATIENT
  Age: 61 Year
  Sex: Female
  Weight: 62.6 kg

DRUGS (6)
  1. PRILOSEC [Concomitant]
  2. SEROQUEL [Suspect]
     Route: 048
     Dates: start: 20110101
  3. ADVAIR DISKUS 100/50 [Concomitant]
     Indication: ASTHMA
  4. SEROQUEL [Suspect]
     Indication: DEPRESSION
     Route: 048
  5. XANAX [Concomitant]
  6. PAXIL [Concomitant]
     Indication: DEPRESSION

REACTIONS (5)
  - TREMOR [None]
  - MYALGIA [None]
  - ADVERSE DRUG REACTION [None]
  - OFF LABEL USE [None]
  - PAIN IN EXTREMITY [None]
